FAERS Safety Report 14922660 (Version 1)
Quarter: 2018Q2

REPORT INFORMATION
  Report Type: Spontaneous
  Country: JP (occurrence: JP)
  Receive Date: 20180522
  Receipt Date: 20180522
  Transmission Date: 20180711
  Serious: Yes (Hospitalization, Other)
  Sender: FDA-Public Use
  Company Number: JP-HORMOSAN-2017-06627

PATIENT
  Age: 8 Decade
  Sex: Male

DRUGS (6)
  1. QUETIAPINE. [Suspect]
     Active Substance: QUETIAPINE
     Indication: HALLUCINATION, VISUAL
     Dosage: 25 MG, QD
     Route: 065
     Dates: start: 201607
  2. QUETIAPINE. [Suspect]
     Active Substance: QUETIAPINE
     Indication: IRRITABILITY
     Dosage: 200 MG, QD
     Route: 065
  3. RIVASTIGMINE. [Suspect]
     Active Substance: RIVASTIGMINE
     Indication: DELUSION
  4. RIVASTIGMINE. [Suspect]
     Active Substance: RIVASTIGMINE
     Indication: HALLUCINATION, VISUAL
     Dosage: 9-18 MG/DAY
     Route: 065
     Dates: start: 201507
  5. QUETIAPINE. [Suspect]
     Active Substance: QUETIAPINE
     Indication: AGGRESSION
     Dosage: DOSE GRADUALLY INCREASED
     Route: 065
  6. RIVASTIGMINE. [Suspect]
     Active Substance: RIVASTIGMINE
     Indication: AGGRESSION

REACTIONS (2)
  - Neuroleptic malignant syndrome [Recovering/Resolving]
  - Drug ineffective [Unknown]

NARRATIVE: CASE EVENT DATE: 2016
